FAERS Safety Report 21185132 (Version 1)
Quarter: 2022Q3

REPORT INFORMATION
  Report Type: Spontaneous
  Country: US (occurrence: None)
  Receive Date: 20220807
  Receipt Date: 20220807
  Transmission Date: 20221027
  Serious: Yes (Life-Threatening, Disabling, Other)
  Sender: FDA-Public Use
  Company Number: None

PATIENT
  Age: 60 Year
  Sex: Female
  Weight: 54 kg

DRUGS (1)
  1. MIRALAX [Suspect]
     Active Substance: POLYETHYLENE GLYCOL 3350
     Indication: Constipation
     Dosage: OTHER QUANTITY : 1 CAPFUL;?FREQUENCY : TWICE A DAY;?
     Route: 048
     Dates: start: 20211015, end: 20220805

REACTIONS (4)
  - Neuropathy peripheral [None]
  - Rectocele [None]
  - Gastrointestinal disorder [None]
  - Parkinson^s disease [None]

NARRATIVE: CASE EVENT DATE: 20220107
